FAERS Safety Report 20768663 (Version 2)
Quarter: 2022Q2

REPORT INFORMATION
  Report Type: Report from Study
  Country: IL (occurrence: IL)
  Receive Date: 20220429
  Receipt Date: 20220429
  Transmission Date: 20220721
  Serious: Yes (Death, Life-Threatening, Hospitalization, Disabling, Other)
  Sender: FDA-Public Use
  Company Number: IL-CELGENE-ISR-20201202230

PATIENT
  Age: 62 Year
  Sex: Male

DRUGS (10)
  1. AZACITIDINE [Suspect]
     Active Substance: AZACITIDINE
     Indication: Myelodysplastic syndrome
     Dosage: FREQUENCY TEXT: DAYS1-5 AND 8,9 OF 28 DAY CYCLE?75 MILLIGRAM/SQ. METER
     Route: 058
     Dates: start: 20201115, end: 20201123
  2. VENETOCLAX [Suspect]
     Active Substance: VENETOCLAX
     Indication: Myelodysplastic syndrome
     Dosage: FREQUENCY TEXT: NOT PROVIDED
     Route: 048
  3. Tambucor [Concomitant]
     Indication: Atrial fibrillation
     Dosage: 100 MILLIGRAM
     Route: 048
     Dates: start: 201804
  4. ATENOLOL [Concomitant]
     Active Substance: ATENOLOL
     Indication: Atrial fibrillation
     Dosage: 25 MILLIGRAM
     Route: 048
     Dates: start: 201804
  5. COSOPT [Concomitant]
     Active Substance: DORZOLAMIDE HYDROCHLORIDE\TIMOLOL MALEATE
     Indication: Glaucoma
     Dosage: .5 DROPS
     Route: 001
     Dates: start: 2000
  6. TRAVATAN [Concomitant]
     Active Substance: TRAVOPROST
     Indication: Glaucoma
     Dosage: 1 GUTT
     Route: 001
     Dates: start: 2000
  7. ATORVASTATIN CALCIUM [Concomitant]
     Active Substance: ATORVASTATIN CALCIUM
     Indication: Hyperlipidaemia
     Dosage: 20 MILLIGRAM
     Route: 048
     Dates: start: 2001
  8. LOSARTAN [Concomitant]
     Active Substance: LOSARTAN
     Indication: Hypertension
     Dosage: 100 MILLIGRAM
     Route: 048
     Dates: start: 2001
  9. AMLODIPINE [Concomitant]
     Active Substance: AMLODIPINE BESYLATE
     Indication: Atrial fibrillation
     Dosage: 10 MILLIGRAM
     Route: 048
     Dates: start: 201804
  10. GUTT [Concomitant]
     Indication: Glaucoma
     Route: 001
     Dates: start: 2020

REACTIONS (3)
  - Disseminated intravascular coagulation [Fatal]
  - Hypertension [Unknown]
  - Atrial fibrillation [Unknown]

NARRATIVE: CASE EVENT DATE: 20201203
